FAERS Safety Report 4690273-2 (Version None)
Quarter: 2005Q2

REPORT INFORMATION
  Report Type: 
  Country: None (occurrence: None)
  Receive Date: 20050613
  Receipt Date: 20050606
  Transmission Date: 20051028
  Serious: Yes (Death, Other)
  Sender: FDA-Public Use
  Company Number: 2005BH000119

PATIENT
  Sex: Male

DRUGS (2)
  1. HEPARIN SODIUM [Suspect]
  2. EPTIFIBATIDE [Concomitant]

REACTIONS (2)
  - GASTROINTESTINAL HAEMORRHAGE [None]
  - HYPOTENSION [None]
